FAERS Safety Report 5002220-4 (Version None)
Quarter: 2006Q2

REPORT INFORMATION
  Report Type: 
  Country: None (occurrence: None)
  Receive Date: 20060511
  Receipt Date: 20060511
  Transmission Date: 20061013
  Serious: No
  Sender: FDA-Public Use
  Company Number: None

PATIENT
  Sex: Female

DRUGS (5)
  1. MIDAZOLAM 1MG/ML  1MG/ML  BEDFORD LABS [Suspect]
     Indication: INTRAVENOUS CATHETER MANAGEMENT
     Dosage: 4MG  ONCE IV BOLUS    ONE DOSE
     Route: 040
     Dates: start: 20060504
  2. VANCOMYCIN [Concomitant]
  3. PROPAFOL [Concomitant]
  4. FENTANYL [Concomitant]
  5. BUPIVACAINE [Concomitant]

REACTIONS (2)
  - ERYTHEMA [None]
  - URTICARIA [None]
